FAERS Safety Report 8693629 (Version 3)
Quarter: 2012Q4

REPORT INFORMATION
  Report Type: 
  Country: US (occurrence: US)
  Receive Date: 20120731
  Receipt Date: 20121023
  Transmission Date: 20130627
  Serious: No
  Sender: FDA-Public Use
  Company Number: US-BIOGENIDEC-2012BI027361

PATIENT
  Age: 59 Year
  Sex: Female

DRUGS (1)
  1. TYSABRI [Suspect]
     Indication: MULTIPLE SCLEROSIS
     Route: 042
     Dates: start: 20120509, end: 20120709

REACTIONS (4)
  - Underdose [Recovered/Resolved]
  - Adverse drug reaction [Unknown]
  - Flushing [Recovered/Resolved]
  - Urticaria [Recovered/Resolved]
